FAERS Safety Report 6433211-4 (Version None)
Quarter: 2009Q4

REPORT INFORMATION
  Report Type: 
  Country: None (occurrence: None)
  Receive Date: 20091105
  Receipt Date: 20091027
  Transmission Date: 20100525
  Serious: Yes (Hospitalization, Other)
  Sender: FDA-Public Use
  Company Number: 2008AL011457

PATIENT
  Age: 50 Year
  Sex: Female

DRUGS (7)
  1. RAMIPRIL [Suspect]
     Dosage: PO
     Route: 048
  2. MYOCRISIN [Concomitant]
  3. SIMVASTATIN [Concomitant]
  4. ATENOLOL [Concomitant]
  5. LANSOPRAZOLE [Concomitant]
  6. PREDNISOLONE [Concomitant]
  7. CODEINE [Concomitant]

REACTIONS (10)
  - BODY TEMPERATURE INCREASED [None]
  - BURNING SENSATION [None]
  - DIARRHOEA [None]
  - DRUG INTERACTION [None]
  - HEADACHE [None]
  - MUSCULOSKELETAL STIFFNESS [None]
  - RASH [None]
  - RENAL FAILURE [None]
  - SHOCK [None]
  - SYNCOPE [None]
